FAERS Safety Report 19782148 (Version 1)
Quarter: 2021Q3

REPORT INFORMATION
  Report Type: Spontaneous
  Country: ZA (occurrence: ZA)
  Receive Date: 20210902
  Receipt Date: 20210902
  Transmission Date: 20211014
  Serious: Yes (Other)
  Sender: FDA-Public Use
  Company Number: ZA-PFIZER INC-202101101994

PATIENT
  Age: 80 Year
  Sex: Female

DRUGS (6)
  1. LOMANOR [Concomitant]
     Active Substance: AMLODIPINE BESYLATE
  2. CRESAR AM [Concomitant]
     Active Substance: AMLODIPINE BESYLATE\TELMISARTAN
  3. TRAMACETA [Concomitant]
  4. TRANQIPAM [Concomitant]
     Active Substance: LORAZEPAM
  5. CYMGEN [Concomitant]
     Active Substance: DULOXETINE HYDROCHLORIDE
  6. LYRICA [Suspect]
     Active Substance: PREGABALIN
     Dosage: UNK
     Dates: start: 2018

REACTIONS (1)
  - Haemorrhagic diathesis [Unknown]
